FAERS Safety Report 7419810-1 (Version None)
Quarter: 2011Q2

REPORT INFORMATION
  Report Type: 
  Country: None (occurrence: None)
  Receive Date: 20110413
  Receipt Date: 20110413
  Transmission Date: 20111010
  Serious: Yes (Hospitalization)
  Sender: FDA-Public Use
  Company Number: None

PATIENT
  Sex: Male
  Weight: 9.47 kg

DRUGS (6)
  1. ACETAMINOPHEN [Concomitant]
  2. PIPERACILLIN AND TAZOBACTAM [Suspect]
     Indication: LIVER ABSCESS
  3. IBUPROFEN [Concomitant]
  4. VANCOMYCIN [Concomitant]
  5. LACTOBACILLUS [Concomitant]
  6. DIPHENHYDRAMINE [Concomitant]

REACTIONS (4)
  - DEVICE RELATED INFECTION [None]
  - SOMNOLENCE [None]
  - HEPATITIS [None]
  - URTICARIA [None]
